FAERS Safety Report 5677787-3 (Version None)
Quarter: 2008Q1

REPORT INFORMATION
  Report Type: 
  Country: None (occurrence: None)
  Receive Date: 20080324
  Receipt Date: 20080320
  Transmission Date: 20080703
  Serious: Yes (Hospitalization, Disabling, Other)
  Sender: FDA-Public Use
  Company Number: US-MERCK-0612USA00525

PATIENT
  Age: 73 Year
  Sex: Female

DRUGS (5)
  1. FOSAMAX [Suspect]
     Indication: OSTEOPOROSIS
     Route: 048
     Dates: start: 20030101, end: 20061202
  2. [THERAPY UNSPECIFIED] [Concomitant]
     Route: 065
  3. LIPITOR [Concomitant]
     Route: 065
  4. PAXIL [Concomitant]
     Route: 065
  5. EVISTA [Concomitant]
     Route: 065

REACTIONS (11)
  - ANAEMIA [None]
  - ARTHROPATHY [None]
  - BACK PAIN [None]
  - GINGIVAL SWELLING [None]
  - IMPAIRED HEALING [None]
  - JAW DISORDER [None]
  - LUNG NEOPLASM MALIGNANT [None]
  - OSTEONECROSIS [None]
  - SPINAL DECOMPRESSION [None]
  - SPINAL FRACTURE [None]
  - SWELLING [None]
